FAERS Safety Report 6639281-2 (Version None)
Quarter: 2010Q1

REPORT INFORMATION
  Report Type: 
  Country: None (occurrence: None)
  Receive Date: 20100315
  Receipt Date: 20100301
  Transmission Date: 20100710
  Serious: Yes (Hospitalization, Other)
  Sender: FDA-Public Use
  Company Number: 2009SP030810

PATIENT
  Age: 41 Year
  Sex: Female

DRUGS (18)
  1. NUVARING [Suspect]
     Indication: DRUG USE FOR UNKNOWN INDICATION
     Dates: end: 20080324
  2. NUVARING [Suspect]
     Indication: DRUG USE FOR UNKNOWN INDICATION
     Dates: start: 20040901
  3. WELLBUTRIN [Concomitant]
  4. LEXAPRO [Concomitant]
  5. CANASA [Concomitant]
  6. CELEXA [Concomitant]
  7. NYSTATIN [Concomitant]
  8. MESALAMINE [Concomitant]
  9. AKNE-MYCIN [Concomitant]
  10. DOXYCYCLINE [Concomitant]
  11. ...... [Concomitant]
  12. HYDROCODONE BITARTRATE AND ACETAMINOPHEN [Concomitant]
  13. PREDNISONE [Concomitant]
  14. DIFERIN [Concomitant]
  15. ALPRAZOLAM [Concomitant]
  16. NULEV [Concomitant]
  17. OXYCODONE [Concomitant]
  18. ALIGN [Concomitant]

REACTIONS (16)
  - ADENOCARCINOMA [None]
  - ARTERIOSCLEROSIS [None]
  - BILIARY DYSKINESIA [None]
  - BREAST CYST [None]
  - DYSPNOEA [None]
  - HEADACHE [None]
  - INTRACRANIAL VENOUS SINUS THROMBOSIS [None]
  - JUGULAR VEIN THROMBOSIS [None]
  - NAUSEA [None]
  - NEOPLASM OF APPENDIX [None]
  - SINUSITIS [None]
  - SKIN EXFOLIATION [None]
  - VAGINAL DISCHARGE [None]
  - VAGINAL INFECTION [None]
  - VOMITING [None]
  - WEIGHT INCREASED [None]
